FAERS Safety Report 18568920 (Version 1)
Quarter: 2020Q4

REPORT INFORMATION
  Report Type: Spontaneous
  Country: FR (occurrence: FR)
  Receive Date: 20201202
  Receipt Date: 20201202
  Transmission Date: 20210114
  Serious: Yes (Other)
  Sender: FDA-Public Use
  Company Number: FR-TEVA-2020-FR-1853903

PATIENT
  Age: 28 Year
  Sex: Female

DRUGS (5)
  1. DAFALGAN [Suspect]
     Active Substance: ACETAMINOPHEN
     Indication: PAIN
     Dosage: 6DOSAGEFORM
     Route: 048
     Dates: start: 20200430, end: 20200502
  2. EFFERALGAN CODEINE, COMPRIME EFFERVESCENT SECABLE [Suspect]
     Active Substance: ACETAMINOPHEN\CODEINE PHOSPHATE
     Indication: PAIN
     Dosage: 2DOSAGEFORM:BREAKABLE EFFERVESCENT TABLET
     Route: 048
     Dates: start: 20200502, end: 20200502
  3. TRAMADOL (CHLORHYDRATE DE) [Suspect]
     Active Substance: TRAMADOL HYDROCHLORIDE
     Indication: PAIN
     Dosage: 600MILLIGRAM
     Route: 048
     Dates: start: 20200430, end: 20200502
  4. DOLIPRANE [Suspect]
     Active Substance: ACETAMINOPHEN
     Indication: PAIN
     Dosage: 5.5GRAM
     Route: 048
     Dates: start: 20200502, end: 20200502
  5. CODEINE [Suspect]
     Active Substance: CODEINE
     Indication: PAIN
     Route: 048
     Dates: start: 20200430, end: 20200502

REACTIONS (4)
  - Abdominal pain [Recovered/Resolved]
  - Intentional overdose [Recovered/Resolved]
  - Analgesic drug level increased [Recovered/Resolved]
  - Somnolence [Recovered/Resolved]

NARRATIVE: CASE EVENT DATE: 20200430
